FAERS Safety Report 8851251 (Version 1)
Quarter: 2012Q4

REPORT INFORMATION
  Report Type: 
  Country: US (occurrence: US)
  Receive Date: 20121019
  Receipt Date: 20121019
  Transmission Date: 20130627
  Serious: Yes (Other)
  Sender: FDA-Public Use
  Company Number: US-PFIZER INC-2012258009

PATIENT
  Age: 45 Year
  Sex: Female

DRUGS (7)
  1. NEURONTIN [Suspect]
     Dosage: 600 mg, 3x/day
  2. CYMBALTA [Concomitant]
     Dosage: 30 mg, UNK
  3. GABAPENTIN [Concomitant]
     Dosage: 300 mg, UNK
  4. FLEXERIL [Concomitant]
     Dosage: 10 mg, UNK
  5. IBUPROFEN [Concomitant]
     Dosage: 800 mg, UNK
  6. PROMETHAZINE HCL [Concomitant]
     Dosage: 25 mg, UNK
  7. KLONOPIN [Concomitant]
     Dosage: 1 mg, UNK

REACTIONS (8)
  - Essential hypertension [Unknown]
  - Asthma [Unknown]
  - Anxiety [Unknown]
  - Back pain [Unknown]
  - Spinal disorder [Unknown]
  - Sacroiliitis [Unknown]
  - Mononeuritis [Unknown]
  - Pharyngitis [Unknown]
